FAERS Safety Report 14279420 (Version 2)
Quarter: 2021Q2

REPORT INFORMATION
  Report Type: Other
  Country: US (occurrence: US)
  Receive Date: 20171213
  Receipt Date: 20210511
  Transmission Date: 20210716
  Serious: Yes (Hospitalization)
  Sender: FDA-Public Use
  Company Number: US-ROCHE-2034322

PATIENT
  Sex: Male

DRUGS (18)
  1. ESBRIET [Suspect]
     Active Substance: PIRFENIDONE
     Indication: CHRONIC KIDNEY DISEASE
  2. FISH OIL [Concomitant]
     Active Substance: FISH OIL
  3. LANTUS [Concomitant]
     Active Substance: INSULIN GLARGINE
  4. ESBRIET [Suspect]
     Active Substance: PIRFENIDONE
     Indication: CHRONIC KIDNEY DISEASE
  5. ASPIRIN. [Concomitant]
     Active Substance: ASPIRIN
  6. DEXILANT [Concomitant]
     Active Substance: DEXLANSOPRAZOLE
  7. NEXIUM [Concomitant]
     Active Substance: ESOMEPRAZOLE MAGNESIUM
  8. METFORMIN [Concomitant]
     Active Substance: METFORMIN HYDROCHLORIDE
  9. XANAX [Concomitant]
     Active Substance: ALPRAZOLAM
  10. ESBRIET [Suspect]
     Active Substance: PIRFENIDONE
     Indication: IDIOPATHIC PULMONARY FIBROSIS
     Dosage: TAKE 3 CAPSULE(S) BY MOUTH 3 TIMES A DAY
     Route: 048
  11. ESBRIET [Suspect]
     Active Substance: PIRFENIDONE
     Indication: IDIOPATHIC PULMONARY FIBROSIS
     Dosage: ONGOING
     Route: 048
     Dates: start: 20160323
  12. FENOFIBRATE. [Concomitant]
     Active Substance: FENOFIBRATE
  13. PROZAC [Concomitant]
     Active Substance: FLUOXETINE HYDROCHLORIDE
  14. SIMVASTATIN. [Concomitant]
     Active Substance: SIMVASTATIN
  15. LASIX [Concomitant]
     Active Substance: FUROSEMIDE
  16. GABAPENTIN. [Concomitant]
     Active Substance: GABAPENTIN
  17. MIRTAZAPINE. [Concomitant]
     Active Substance: MIRTAZAPINE
  18. TRAZODONE [Concomitant]
     Active Substance: TRAZODONE HYDROCHLORIDE

REACTIONS (2)
  - Generalised oedema [Unknown]
  - Fluid retention [Unknown]
